FAERS Safety Report 13903095 (Version 2)
Quarter: 2017Q3

REPORT INFORMATION
  Report Type: Spontaneous
  Country: AU (occurrence: AU)
  Receive Date: 20170824
  Receipt Date: 20170919
  Transmission Date: 20171127
  Serious: Yes (Hospitalization, Other)
  Sender: FDA-Public Use
  Company Number: AU-INDIVIOR LIMITED-INDV-103990-2017

PATIENT

DRUGS (1)
  1. SUBOXONE [Suspect]
     Active Substance: BUPRENORPHINE HYDROCHLORIDE\NALOXONE HYDROCHLORIDE
     Indication: PRODUCT USED FOR UNKNOWN INDICATION
     Dosage: 8MG, UNK
     Route: 051

REACTIONS (11)
  - Empyema [Unknown]
  - Beta haemolytic streptococcal infection [Unknown]
  - Septic shock [Unknown]
  - Brachiocephalic vein thrombosis [Unknown]
  - Hepatitis C [Unknown]
  - Streptococcal sepsis [Unknown]
  - Thrombocytopenia [Unknown]
  - Respiratory distress [Unknown]
  - Intentional product use issue [Unknown]
  - Acute kidney injury [Unknown]
  - Lung abscess [Unknown]

NARRATIVE: CASE EVENT DATE: 2017
